FAERS Safety Report 7774702 (Version 7)
Quarter: 2012Q4

REPORT INFORMATION
  Report Type: Report from Study
  Country: JP (occurrence: JP)
  Receive Date: 20110126
  Receipt Date: 20121001
  Transmission Date: 20130627
  Serious: Yes (Death, Life-Threatening, Hospitalization, Other)
  Sender: FDA-Public Use
  Company Number: JP-CELGENEUS-087-21880-11011446

PATIENT
  Age: 71 Year
  Sex: Male

DRUGS (39)
  1. REVLIMID [Suspect]
     Indication: MULTIPLE MYELOMA
     Dosage: 10 Milligram
     Route: 048
     Dates: start: 20101209, end: 20101229
  2. REVLIMID [Suspect]
     Dosage: 5 Milligram
     Route: 048
     Dates: start: 20110106, end: 20110126
  3. REVLIMID [Suspect]
     Dosage: 5 Milligram
     Route: 048
     Dates: start: 20110203, end: 20110216
  4. LENADEX [Suspect]
     Indication: MULTIPLE MYELOMA
     Dosage: 20 Milligram
     Route: 048
     Dates: start: 20110106, end: 20110120
  5. LENADEX [Suspect]
     Dosage: 20 Milligram
     Route: 048
     Dates: start: 20110127, end: 20110210
  6. BAKTAR [Concomitant]
     Indication: PROPHYLAXIS
     Dosage: 1 Tablet
     Route: 048
     Dates: end: 20110105
  7. BAKTAR [Concomitant]
     Dosage: 1 Tablet
     Route: 048
     Dates: start: 20110106, end: 20110216
  8. FLUCONAZOLE [Concomitant]
     Indication: PROPHYLAXIS
     Dosage: 200 Milligram
     Route: 048
     Dates: end: 20110105
  9. FLUCONAZOLE [Concomitant]
     Dosage: 200 Milligram
     Route: 048
     Dates: start: 20110106, end: 20110216
  10. AMLODIPINE [Concomitant]
     Indication: HYPERTENSION
     Dosage: 5 Milligram
     Route: 048
     Dates: end: 20110105
  11. AMLODIPINE [Concomitant]
     Dosage: 5 Milligram
     Route: 048
     Dates: start: 20110106, end: 20110216
  12. BAYASPIRIN [Concomitant]
     Indication: PROPHYLAXIS
     Dosage: 100 Milligram
     Route: 048
     Dates: end: 20110105
  13. BAYASPIRIN [Concomitant]
     Dosage: 100 Milligram
     Route: 048
     Dates: start: 20110106, end: 20110216
  14. LOXONIN [Concomitant]
     Indication: DRUG USE FOR UNKNOWN INDICATION
     Dosage: 120 Milligram
     Route: 048
     Dates: end: 20110105
  15. LOXONIN [Concomitant]
     Dosage: 120 Milligram
     Route: 048
     Dates: start: 20110106, end: 20110216
  16. KOBALNON [Concomitant]
     Indication: PROPHYLAXIS
     Dosage: 1.5 Gram
     Route: 048
     Dates: end: 20110105
  17. KOBALNON [Concomitant]
     Dosage: 1.5 Gram
     Route: 048
     Dates: start: 20110106, end: 20110216
  18. BROTIZOLAM [Concomitant]
     Indication: DRUG USE FOR UNKNOWN INDICATION
     Dosage: .25 Milligram
     Route: 048
     Dates: end: 20110105
  19. BROTIZOLAM [Concomitant]
     Dosage: .25 Milligram
     Route: 048
     Dates: start: 20110106, end: 20110216
  20. DUROTEP [Concomitant]
     Indication: DRUG USE FOR UNKNOWN INDICATION
     Dosage: 4.2 Milligram
     Route: 062
     Dates: start: 20101206, end: 20110105
  21. DUROTEP [Concomitant]
     Dosage: 4.2 Milligram
     Route: 062
     Dates: start: 20110106, end: 20110216
  22. VALTREX [Concomitant]
     Indication: PROPHYLAXIS
     Dosage: 1000 Milligram
     Route: 048
     Dates: start: 20101209, end: 20110105
  23. VALTREX [Concomitant]
     Dosage: 1000 Milligram
     Route: 048
     Dates: start: 20110106, end: 20110216
  24. FLOMOX [Concomitant]
     Indication: PROPHYLAXIS
     Dosage: 300 Milligram
     Route: 048
     Dates: start: 20101209, end: 20110105
  25. FLOMOX [Concomitant]
     Dosage: 300 Milligram
     Route: 048
     Dates: start: 20110106, end: 20110216
  26. PL [Concomitant]
     Indication: DRUG USE FOR UNKNOWN INDICATION
     Dosage: 3 Gram
     Route: 048
     Dates: start: 20101209, end: 20110105
  27. PL [Concomitant]
     Dosage: 3 Gram
     Route: 048
     Dates: start: 20110106, end: 20110216
  28. GRAN [Concomitant]
     Indication: MULTIPLE MYELOMA
     Dosage: 75 Microgram
     Route: 058
     Dates: start: 20110216, end: 20110218
  29. GRAN [Concomitant]
     Dosage: 75 Microgram
     Route: 058
     Dates: start: 20110221, end: 20110225
  30. FUNGUARD [Concomitant]
     Indication: MULTIPLE MYELOMA
     Dosage: 150 Milligram
     Route: 041
     Dates: start: 20110217, end: 20110223
  31. DORMICUM [Concomitant]
     Indication: MULTIPLE MYELOMA
     Dosage: 180 Milligram
     Route: 030
     Dates: start: 20110219, end: 20110225
  32. ELASPOL [Concomitant]
     Indication: MULTIPLE MYELOMA
     Dosage: 300 Milligram
     Route: 041
     Dates: start: 20110219, end: 20110225
  33. FOY [Concomitant]
     Indication: MULTIPLE MYELOMA
     Dosage: 1000 Milligram
     Route: 041
     Dates: start: 20110219, end: 20110223
  34. FOY [Concomitant]
     Dosage: 2000 Milligram
     Route: 041
     Dates: start: 20110224, end: 20110225
  35. CATABON [Concomitant]
     Indication: MULTIPLE MYELOMA
     Route: 041
     Dates: start: 20110219, end: 20110225
  36. LASIX [Concomitant]
     Indication: MULTIPLE MYELOMA
     Dosage: 20 Milligram
     Route: 041
     Dates: start: 20110222, end: 20110225
  37. BENAMBAX [Concomitant]
     Indication: MULTIPLE MYELOMA
     Dosage: 200 Milligram
     Route: 041
     Dates: start: 20110224, end: 20110225
  38. PASIL [Concomitant]
     Indication: MULTIPLE MYELOMA
     Dosage: 1000 Milligram
     Route: 041
     Dates: start: 20110224, end: 20110225
  39. FENTANYL [Concomitant]
     Indication: MULTIPLE MYELOMA
     Dosage: .6 Milligram
     Route: 041
     Dates: start: 20110225

REACTIONS (6)
  - Pneumonia viral [Fatal]
  - Influenza [Recovered/Resolved with Sequelae]
  - Sepsis [Unknown]
  - Inflammation [Recovering/Resolving]
  - Thrombocytopenia [Not Recovered/Not Resolved]
  - Haemoglobin decreased [Unknown]
